FAERS Safety Report 15801379 (Version 1)
Quarter: 2019Q1

REPORT INFORMATION
  Report Type: Spontaneous
  Country: US (occurrence: US)
  Receive Date: 20190109
  Receipt Date: 20190109
  Transmission Date: 20190417
  Serious: No
  Sender: FDA-Public Use
  Company Number: US-DRREDDYS-USA/USA/18/0104739

PATIENT
  Age: 50 Year
  Sex: Male
  Weight: 75 kg

DRUGS (4)
  1. CLOPIDOGREL [Concomitant]
     Active Substance: CLOPIDOGREL BISULFATE
     Indication: VEIN DISORDER
     Route: 065
  2. ATORVASTATIN [Concomitant]
     Active Substance: ATORVASTATIN
     Indication: VEIN DISORDER
     Route: 065
  3. NICOTINE. [Suspect]
     Active Substance: NICOTINE
     Indication: PRODUCT USED FOR UNKNOWN INDICATION
     Route: 062
     Dates: start: 20181003
  4. BABY ASPIRIN [Concomitant]
     Active Substance: ASPIRIN
     Indication: VEIN DISORDER
     Route: 065

REACTIONS (1)
  - Product adhesion issue [Unknown]

NARRATIVE: CASE EVENT DATE: 20181003
